FAERS Safety Report 24957988 (Version 1)
Quarter: 2025Q1

REPORT INFORMATION
  Report Type: Spontaneous
  Country: US (occurrence: US)
  Receive Date: 20250212
  Receipt Date: 20250212
  Transmission Date: 20250408
  Serious: Yes (Other)
  Sender: ROCHE
  Company Number: US-ROCHE-10000199662

PATIENT
  Age: 72 Year
  Sex: Female

DRUGS (1)
  1. XOLAIR [Suspect]
     Active Substance: OMALIZUMAB
     Indication: Product used for unknown indication
     Route: 065
     Dates: start: 2012

REACTIONS (8)
  - Myalgia [Unknown]
  - Tendon pain [Unknown]
  - Spinal fracture [Unknown]
  - Foot fracture [Unknown]
  - Paraesthesia [Unknown]
  - Rash [Unknown]
  - Muscular weakness [Unknown]
  - Arthropathy [Unknown]
